FAERS Safety Report 26045786 (Version 1)
Quarter: 2025Q4

REPORT INFORMATION
  Report Type: Spontaneous
  Country: IN (occurrence: IN)
  Receive Date: 20251114
  Receipt Date: 20251114
  Transmission Date: 20260118
  Serious: Yes (Life-Threatening, Hospitalization)
  Sender: ABBVIE
  Company Number: IN-PFIZER INC-202500219715

PATIENT
  Age: 60 Year
  Sex: Female

DRUGS (1)
  1. AVIBACTAM\AZTREONAM [Suspect]
     Active Substance: AVIBACTAM\AZTREONAM
     Indication: Urinary tract infection
     Dosage: 2G, EVERY 6 HRS (6TH HOURLY)
     Route: 042
     Dates: start: 20251105, end: 20251105

REACTIONS (1)
  - Dyspnoea [Unknown]

NARRATIVE: CASE EVENT DATE: 20251105
